FAERS Safety Report 10568033 (Version 3)
Quarter: 2015Q1

REPORT INFORMATION
  Report Type: Report from Study
  Country: US (occurrence: US)
  Receive Date: 20141106
  Receipt Date: 20150330
  Transmission Date: 20150720
  Serious: Yes (Hospitalization, Other)
  Sender: FDA-Public Use
  Company Number: US-JNJFOC-20141100743

PATIENT
  Age: 62 Year
  Sex: Female

DRUGS (1)
  1. REMICADE [Suspect]
     Active Substance: INFLIXIMAB
     Indication: RHEUMATOID ARTHRITIS
     Route: 042

REACTIONS (5)
  - Weight decreased [Unknown]
  - Hypersensitivity [Recovered/Resolved]
  - Chills [Unknown]
  - Night sweats [Unknown]
  - Oesophageal stenosis [Unknown]

NARRATIVE: CASE EVENT DATE: 20140603
